FAERS Safety Report 6778126-7 (Version None)
Quarter: 2010Q2

REPORT INFORMATION
  Report Type: 
  Country: None (occurrence: None)
  Receive Date: 20100618
  Receipt Date: 20070816
  Transmission Date: 20101027
  Serious: No
  Sender: FDA-Public Use
  Company Number: 2006BI018927

PATIENT
  Age: 73 Year
  Sex: Female

DRUGS (1)
  1. TYSABRI [Suspect]
     Indication: MULTIPLE SCLEROSIS
     Route: 042
     Dates: start: 20061024, end: 20061219

REACTIONS (3)
  - CHEST DISCOMFORT [None]
  - FLUSHING [None]
  - MUSCULOSKELETAL DISCOMFORT [None]
